FAERS Safety Report 8529942-2 (Version None)
Quarter: 2012Q3

REPORT INFORMATION
  Report Type: 
  Country: None (occurrence: None)
  Receive Date: 20120723
  Receipt Date: 20120713
  Transmission Date: 20120928
  Serious: Yes (Other)
  Sender: FDA-Public Use
  Company Number: US-BRISTOL-MYERS SQUIBB COMPANY-16666760

PATIENT
  Age: 56 Year
  Sex: Male
  Weight: 97 kg

DRUGS (3)
  1. CYMBALTA [Concomitant]
     Route: 048
  2. SPRYCEL [Suspect]
     Indication: CHRONIC MYELOID LEUKAEMIA
     Route: 048
     Dates: start: 20120217
  3. POTASSIUM PHOSPHATES [Concomitant]
     Route: 048

REACTIONS (1)
  - DIAPHRAGMATIC DISORDER [None]
